FAERS Safety Report 8273632-0 (Version None)
Quarter: 2012Q2

REPORT INFORMATION
  Report Type: 
  Country: None (occurrence: None)
  Receive Date: 20120411
  Receipt Date: 20120210
  Transmission Date: 20120825
  Serious: No
  Sender: FDA-Public Use
  Company Number: US-TEVA-322184USA

PATIENT
  Sex: Female
  Weight: 96.248 kg

DRUGS (7)
  1. GABAPENTIN [Concomitant]
     Dosage: 300 MILLIGRAM;
     Route: 048
  2. OBETROL [Concomitant]
     Dosage: 60 MILLIGRAM;
     Route: 048
  3. FLUOXETINE [Concomitant]
     Indication: DEPRESSION
     Dosage: 40 MILLIGRAM;
     Route: 048
  4. TOPIRAMATE [Concomitant]
     Dosage: 200 MILLIGRAM;
     Route: 048
  5. NUVIGIL [Suspect]
     Indication: SEDATION
     Dosage: 250 MILLIGRAM;
     Route: 048
     Dates: start: 20110101
  6. CLONAZEPAM [Concomitant]
     Indication: NERVOUSNESS
     Dosage: 2 MILLIGRAM;
     Route: 048
  7. ZIPRASIDONE HCL [Concomitant]
     Route: 048

REACTIONS (2)
  - DRUG INEFFECTIVE [None]
  - SOMNOLENCE [None]
